FAERS Safety Report 6386948-X (Version None)
Quarter: 2009Q4

REPORT INFORMATION
  Report Type: 
  Country: None (occurrence: None)
  Receive Date: 20091002
  Receipt Date: 20090929
  Transmission Date: 20100525
  Serious: Yes (Other)
  Sender: FDA-Public Use
  Company Number: US-AMGEN-US363624

PATIENT
  Sex: Female
  Weight: 140 kg

DRUGS (8)
  1. NPLATE [Suspect]
     Indication: IDIOPATHIC THROMBOCYTOPENIC PURPURA
     Route: 058
     Dates: start: 20090507
  2. CALCIUM CARBONATE [Concomitant]
     Route: 048
  3. HYDROCHLOROTHIAZIDE [Concomitant]
     Route: 048
  4. LANTUS [Concomitant]
  5. HUMALOG [Concomitant]
  6. LEVOTHYROXINE SODIUM [Concomitant]
     Route: 048
  7. GLYBURIDE AND METFORMIN HCL [Concomitant]
  8. VALSARTAN [Concomitant]
     Route: 048

REACTIONS (1)
  - THROMBOCYTOPENIA [None]
